FAERS Safety Report 9251382 (Version 2)
Quarter: 2013Q3

REPORT INFORMATION
  Report Type: Report from Study
  Country: FR (occurrence: FR)
  Receive Date: 20130424
  Receipt Date: 20130717
  Transmission Date: 20140515
  Serious: Yes (Other)
  Sender: FDA-Public Use
  Company Number: FR-AMGEN-FRACT2013028529

PATIENT
  Age: 60 Year
  Sex: Female

DRUGS (9)
  1. ETANERCEPT [Suspect]
     Indication: RHEUMATOID ARTHRITIS
     Dosage: 50 MG, QWK
     Route: 065
     Dates: start: 200510, end: 200604
  2. ETANERCEPT [Suspect]
     Dosage: 50 MG, QWK
     Route: 065
     Dates: start: 200609, end: 200707
  3. ETANERCEPT [Suspect]
     Dosage: 50 MG, QWK
     Route: 065
     Dates: start: 200707, end: 200809
  4. METHOTREXATE [Concomitant]
     Dosage: 15 MG, WEEKLY
     Dates: start: 199001, end: 200810
  5. PREDNISONE [Concomitant]
     Dosage: 8 MG, 1X/DAY
     Dates: start: 199501, end: 200604
  6. PREDNISONE [Concomitant]
     Dosage: 7 MG, 1X/DAY
     Dates: start: 200604, end: 200610
  7. PREDNISONE [Concomitant]
     Dosage: 6 MG, 1X/DAY
     Dates: start: 200610, end: 200612
  8. PREDNISONE [Concomitant]
     Dosage: 5 MG, 1X/DAY
     Dates: start: 200612, end: 200710
  9. PREDNISONE [Concomitant]
     Dosage: 7 MG, 1X/DAY
     Dates: start: 200710, end: 200810

REACTIONS (3)
  - Tonsillitis [Unknown]
  - Herpes zoster [Unknown]
  - Escherichia urinary tract infection [Unknown]
